FAERS Safety Report 6017502-7 (Version None)
Quarter: 2008Q4

REPORT INFORMATION
  Report Type: 
  Country: None (occurrence: None)
  Receive Date: 20081223
  Receipt Date: 20080430
  Transmission Date: 20090506
  Serious: No
  Sender: FDA-Public Use
  Company Number: US-BRISTOL-MYERS SQUIBB COMPANY-14171748

PATIENT
  Sex: Female

DRUGS (1)
  1. CARDIOLITE [Suspect]
     Dosage: RECEIVED 1 DOSE

REACTIONS (1)
  - EYE SWELLING [None]
